FAERS Safety Report 6110906-3 (Version None)
Quarter: 2009Q1

REPORT INFORMATION
  Report Type: 
  Country: None (occurrence: None)
  Receive Date: 20090311
  Receipt Date: 20090304
  Transmission Date: 20090719
  Serious: Yes (Hospitalization)
  Sender: FDA-Public Use
  Company Number: US-BIOGENIDEC-2008BI028987

PATIENT
  Age: 44 Year
  Sex: Female
  Weight: 76 kg

DRUGS (6)
  1. TYSABRI [Suspect]
     Indication: MULTIPLE SCLEROSIS
     Route: 042
     Dates: start: 20080121, end: 20081024
  2. XANAX [Concomitant]
     Indication: ANXIETY
     Dates: start: 20050101
  3. HYDROXYZINE [Concomitant]
     Indication: ANXIETY
     Dates: start: 20050101
  4. TOPAMAX [Concomitant]
     Indication: DEPRESSION
     Dates: start: 20030101
  5. CITALOPRAM HYDROBROMIDE [Concomitant]
     Indication: DEPRESSION
     Dates: start: 20030101
  6. ZANTAC [Concomitant]
     Indication: GASTROOESOPHAGEAL REFLUX DISEASE
     Dates: start: 20030101

REACTIONS (4)
  - BORDERLINE PERSONALITY DISORDER [None]
  - NUCLEAR MAGNETIC RESONANCE IMAGING ABNORMAL [None]
  - PANCREATITIS [None]
  - WEIGHT INCREASED [None]
